FAERS Safety Report 12622555 (Version 2)
Quarter: 2016Q3

REPORT INFORMATION
  Report Type: Report from Study
  Country: AU (occurrence: AU)
  Receive Date: 20160804
  Receipt Date: 20160901
  Transmission Date: 20161109
  Serious: Yes (Other)
  Sender: FDA-Public Use
  Company Number: PHHY2016AU105409

PATIENT
  Sex: Male

DRUGS (1)
  1. SANDOSTATIN LAR DEPOT [Suspect]
     Active Substance: OCTREOTIDE ACETATE
     Indication: CARCINOID SYNDROME
     Dosage: 20 MG, UNK
     Route: 030

REACTIONS (5)
  - Feeling abnormal [Not Recovered/Not Resolved]
  - Neoplasm progression [Unknown]
  - Malignant neoplasm progression [Unknown]
  - Depression [Not Recovered/Not Resolved]
  - Pseudolymphoma [Unknown]
